FAERS Safety Report 6574720-7 (Version None)
Quarter: 2010Q1

REPORT INFORMATION
  Report Type: 
  Country: None (occurrence: None)
  Receive Date: 20100209
  Receipt Date: 20100203
  Transmission Date: 20100710
  Serious: Yes (Death, Hospitalization, Other)
  Sender: FDA-Public Use
  Company Number: PHHY2009JP33215

PATIENT
  Age: 41 Year
  Sex: Female

DRUGS (5)
  1. GLEEVEC [Suspect]
     Indication: CHRONIC MYELOID LEUKAEMIA
     Dosage: 400 MG DAILY
     Route: 048
  2. GLEEVEC [Suspect]
     Dosage: 200 MG DAILY
     Route: 048
  3. ANTITUSSIVES [Concomitant]
  4. PREDNISONE [Concomitant]
  5. STEROIDS NOS [Concomitant]

REACTIONS (13)
  - ALVEOLAR PROTEINOSIS [None]
  - CHRONIC MYELOID LEUKAEMIA [None]
  - COUGH [None]
  - DISEASE PROGRESSION [None]
  - DYSPNOEA [None]
  - HAEMATOTOXICITY [None]
  - INTERSTITIAL LUNG DISEASE [None]
  - LUNG INFECTION PSEUDOMONAL [None]
  - LUNG INFILTRATION [None]
  - MECHANICAL VENTILATION [None]
  - PULMONARY HAEMORRHAGE [None]
  - RASH [None]
  - RESPIRATORY FAILURE [None]
